FAERS Safety Report 17576310 (Version 2)
Quarter: 2020Q2

REPORT INFORMATION
  Report Type: Spontaneous
  Country: TR (occurrence: TR)
  Receive Date: 20200324
  Receipt Date: 20200407
  Transmission Date: 20200713
  Serious: Yes (Life-Threatening, Hospitalization, Other)
  Sender: FDA-Public Use
  Company Number: TR-MACLEODS PHARMACEUTICALS US LTD-MAC2020025848

PATIENT

DRUGS (1)
  1. METFORMIN [Suspect]
     Active Substance: METFORMIN HYDROCHLORIDE
     Indication: SUICIDE ATTEMPT
     Dosage: 40 GRAM, TOTAL, 727 MG/KG
     Route: 065

REACTIONS (4)
  - Lactic acidosis [Recovered/Resolved]
  - Loss of consciousness [Recovered/Resolved]
  - Intentional overdose [Recovering/Resolving]
  - Suicide attempt [Recovered/Resolved]
